FAERS Safety Report 21711998 (Version 1)
Quarter: 2022Q4

REPORT INFORMATION
  Report Type: Spontaneous
  Country: PL (occurrence: PL)
  Receive Date: 20221212
  Receipt Date: 20221212
  Transmission Date: 20230113
  Serious: Yes (Other)
  Sender: FDA-Public Use
  Company Number: PL-002147023-NVSC2022PL260921

PATIENT
  Age: 48 Year
  Sex: Female

DRUGS (3)
  1. LETROZOLE [Suspect]
     Active Substance: LETROZOLE
     Indication: Product used for unknown indication
     Dosage: 2.5 MILLIGRAM, ONCE A DAY
     Route: 048
     Dates: start: 201908
  2. TAMOXIFEN [Suspect]
     Active Substance: TAMOXIFEN
     Indication: Breast cancer
     Dosage: 20 MILLIGRAM
     Route: 048
     Dates: start: 201403
  3. ZOLADEX [Suspect]
     Active Substance: GOSERELIN ACETATE
     Indication: Product used for unknown indication
     Dosage: 3.6 MILLIGRAM
     Route: 058
     Dates: start: 201403

REACTIONS (7)
  - Ascites [Recovering/Resolving]
  - Metastases to peritoneum [Unknown]
  - Metastases to pleura [Recovering/Resolving]
  - Invasive lobular breast carcinoma [Unknown]
  - Dyspnoea [Unknown]
  - Fluid retention [Recovered/Resolved]
  - Abdominal pain [Unknown]

NARRATIVE: CASE EVENT DATE: 20190701
